FAERS Safety Report 9089118 (Version 1)
Quarter: 2013Q1

REPORT INFORMATION
  Report Type: Spontaneous
  Country: IT (occurrence: IT)
  Receive Date: 20130131
  Receipt Date: 20130131
  Transmission Date: 20140127
  Serious: Yes (Hospitalization)
  Sender: FDA-Public Use
  Company Number: IT-PFIZER INC-2013034204

PATIENT
  Age: 78 Year
  Sex: Male

DRUGS (8)
  1. AMIODARONE HCL [Suspect]
     Indication: PRODUCT USED FOR UNKNOWN INDICATION
     Dosage: 200 MG, DAILY
     Route: 048
     Dates: start: 20110101, end: 20130115
  2. CIPRALEX [Suspect]
     Indication: PRODUCT USED FOR UNKNOWN INDICATION
     Dosage: 10 DROPS, DAILY
     Route: 048
     Dates: start: 20110101, end: 20130115
  3. SINTROM [Suspect]
     Indication: PRODUCT USED FOR UNKNOWN INDICATION
     Dosage: 1 MG, DAILY
     Route: 048
     Dates: start: 20110101, end: 20130115
  4. LANOXIN [Concomitant]
     Dosage: UNK
  5. LANSOX [Concomitant]
     Dosage: UNK
  6. HALDOL [Concomitant]
     Dosage: UNK
  7. TAVOR [Concomitant]
     Dosage: UNK
  8. CALCIUM [Concomitant]
     Dosage: UNK

REACTIONS (2)
  - Haematuria [Recovering/Resolving]
  - Rectal haemorrhage [Recovering/Resolving]
